FAERS Safety Report 24550083 (Version 2)
Quarter: 2024Q4

REPORT INFORMATION
  Report Type: Spontaneous
  Country: JP (occurrence: JP)
  Receive Date: 20241025
  Receipt Date: 20241119
  Transmission Date: 20250114
  Serious: Yes (Death, Hospitalization)
  Sender: BAYER HEALTHCARE PHARMACEUTICALS INC.
  Company Number: JP-BAYER-2024A130212

PATIENT
  Sex: Male

DRUGS (3)
  1. NUBEQA [Suspect]
     Active Substance: DAROLUTAMIDE
     Indication: Hormone-dependent prostate cancer
     Dates: start: 20240603, end: 20240831
  2. DOCETAXEL [Concomitant]
     Active Substance: DOCETAXEL
     Indication: Hormone-dependent prostate cancer
     Dosage: UNK
     Dates: end: 20240831
  3. DEGARELIX [Concomitant]
     Active Substance: DEGARELIX
     Indication: Hormone replacement therapy
     Dosage: 120MG?2
     Dates: start: 20240514

REACTIONS (2)
  - Death [Fatal]
  - Acute interstitial pneumonitis [Not Recovered/Not Resolved]

NARRATIVE: CASE EVENT DATE: 20240831
